FAERS Safety Report 6055622-1 (Version None)
Quarter: 2009Q1

REPORT INFORMATION
  Report Type: 
  Country: None (occurrence: None)
  Receive Date: 20090128
  Receipt Date: 20090119
  Transmission Date: 20090719
  Serious: Yes (Other)
  Sender: FDA-Public Use
  Company Number: GB-MERCK-0812GBR00051

PATIENT
  Age: 27 Year
  Sex: Male
  Weight: 80 kg

DRUGS (3)
  1. PROPECIA [Suspect]
     Indication: ANDROGENETIC ALOPECIA
     Route: 048
     Dates: start: 20080801, end: 20081201
  2. PROPECIA [Suspect]
     Route: 048
  3. MINOXIDIL [Concomitant]
     Indication: ANDROGENETIC ALOPECIA
     Route: 065
     Dates: start: 20070801

REACTIONS (1)
  - ACNE [None]
